FAERS Safety Report 7927457-3 (Version None)
Quarter: 2011Q4

REPORT INFORMATION
  Report Type: 
  Country: None (occurrence: None)
  Receive Date: 20111118
  Receipt Date: 20111108
  Transmission Date: 20120403
  Serious: No
  Sender: FDA-Public Use
  Company Number: US-BAYER-2011-008255

PATIENT
  Age: 60 Year
  Sex: Female

DRUGS (4)
  1. CITALOPRAM HYDROBROMIDE [Concomitant]
     Dosage: 10 MG, TAB
  2. CALCIUM +VIT D [Concomitant]
  3. VESICARE [Concomitant]
     Dosage: 5 MG TAB, UNK
  4. BETASERON [Suspect]
     Indication: PRODUCT USED FOR UNKNOWN INDICATION
     Dosage: 0.25 ML, QOD
     Route: 058

REACTIONS (2)
  - INJECTION SITE PAIN [None]
  - INJECTION SITE REACTION [None]
